FAERS Safety Report 6083970-8 (Version None)
Quarter: 2009Q1

REPORT INFORMATION
  Report Type: 
  Country: None (occurrence: None)
  Receive Date: 20090219
  Receipt Date: 20090209
  Transmission Date: 20090719
  Serious: Yes (Other)
  Sender: FDA-Public Use
  Company Number: BR-PFIZER INC-2009169238

PATIENT

DRUGS (9)
  1. NEURONTIN [Suspect]
     Indication: HERPES ZOSTER
     Dosage: UNK
     Route: 048
  2. NEURONTIN [Suspect]
     Indication: CONVULSION
  3. GABAPENTIN [Suspect]
     Indication: HERPES ZOSTER
     Dosage: 300 MG, ALTERNATE DAY
  4. GABAPENTIN [Suspect]
     Indication: CONVULSION
  5. ALL OTHER THERAPEUTIC PRODUCTS [Concomitant]
     Dosage: UNK
  6. FINASTERIDE [Concomitant]
     Dosage: UNK
  7. NOVONORM [Concomitant]
     Dosage: UNK
  8. LOSARTAN [Concomitant]
     Dosage: UNK
  9. DOXAZOSIN [Concomitant]
     Dosage: UNK

REACTIONS (7)
  - CONVULSION [None]
  - DRUG INEFFECTIVE [None]
  - DYSKINESIA [None]
  - FALL [None]
  - MALAISE [None]
  - TINNITUS [None]
  - VISUAL IMPAIRMENT [None]
